FAERS Safety Report 24907860 (Version 1)
Quarter: 2025Q1

REPORT INFORMATION
  Report Type: Spontaneous
  Country: IE (occurrence: IE)
  Receive Date: 20250131
  Receipt Date: 20250131
  Transmission Date: 20250409
  Serious: Yes (Other)
  Sender: SUNOVION
  Company Number: IE-BIAL-BIAL-18226

PATIENT

DRUGS (2)
  1. ESLICARBAZEPINE ACETATE [Suspect]
     Active Substance: ESLICARBAZEPINE ACETATE
     Indication: Seizure
     Route: 065
  2. VITAMIN K [Concomitant]
     Active Substance: PHYTONADIONE
     Indication: Product used for unknown indication
     Route: 030

REACTIONS (4)
  - Hyperbilirubinaemia [Unknown]
  - Foetal exposure timing unspecified [Unknown]
  - Gastrointestinal disorder [Unknown]
  - Feeding disorder [Unknown]
